FAERS Safety Report 5004221-9 (Version None)
Quarter: 2006Q2

REPORT INFORMATION
  Report Type: 
  Country: None (occurrence: None)
  Receive Date: 20060511
  Receipt Date: 20060502
  Transmission Date: 20061013
  Serious: Yes (Death)
  Sender: FDA-Public Use
  Company Number: MEDI-0004548

PATIENT
  Age: 66 Year
  Sex: Male

DRUGS (8)
  1. ETHYOL [Suspect]
     Indication: RADIOTHERAPY
     Dosage: 5 IN 1 WK, SUBCUTANEOUS
     Route: 058
     Dates: start: 20050808, end: 20051006
  2. RADIATION THERAPY [Concomitant]
  3. TAXOL [Concomitant]
  4. CARBOPLATIN [Concomitant]
  5. LIPITOR [Concomitant]
  6. AVALIDE (HYDROCHLORTHIAZIDE, IRBESARTAN) [Concomitant]
  7. PRILOSEC [Concomitant]
  8. DECADRON SRC [Concomitant]

REACTIONS (2)
  - DISEASE PROGRESSION [None]
  - RESPIRATORY FAILURE [None]
